FAERS Safety Report 7654455-X (Version None)
Quarter: 2011Q3

REPORT INFORMATION
  Report Type: 
  Country: None (occurrence: None)
  Receive Date: 20110803
  Receipt Date: 20110727
  Transmission Date: 20111222
  Serious: Yes (Hospitalization)
  Sender: FDA-Public Use
  Company Number: US-ABBOTT-11P-163-0842062-00

PATIENT
  Sex: Female
  Weight: 14.528 kg

DRUGS (2)
  1. CREON [Suspect]
     Indication: CYSTIC FIBROSIS
     Dates: end: 20110718
  2. PULMOZYME [Concomitant]
     Indication: PRODUCT USED FOR UNKNOWN INDICATION

REACTIONS (4)
  - WEIGHT GAIN POOR [None]
  - LUNG INFECTION PSEUDOMONAL [None]
  - DRUG EFFECT DECREASED [None]
  - DIARRHOEA [None]
